FAERS Safety Report 9866409 (Version 1)
Quarter: 2014Q1

REPORT INFORMATION
  Report Type: Report from Study
  Country: FR (occurrence: FR)
  Receive Date: 20140204
  Receipt Date: 20140204
  Transmission Date: 20141002
  Serious: Yes (Other)
  Sender: FDA-Public Use
  Company Number: FR-ROCHE-1340853

PATIENT
  Sex: Female

DRUGS (3)
  1. RITUXIMAB [Suspect]
     Indication: RHEUMATOID ARTHRITIS
     Dosage: DAY 1
     Route: 065
     Dates: start: 20080124, end: 20090712
  2. CORTANCYL [Concomitant]
     Dosage: 10 MG/DAY
     Route: 065
     Dates: start: 20080124
  3. SALAZOPYRINE [Concomitant]
     Route: 065
     Dates: start: 20090712

REACTIONS (3)
  - Sinusitis [Unknown]
  - Upper respiratory tract infection [Not Recovered/Not Resolved]
  - Retroperitoneal fibrosis [Not Recovered/Not Resolved]
